FAERS Safety Report 8273420-5 (Version None)
Quarter: 2012Q2

REPORT INFORMATION
  Report Type: 
  Country: None (occurrence: None)
  Receive Date: 20120411
  Receipt Date: 20120405
  Transmission Date: 20120825
  Serious: Yes (Hospitalization)
  Sender: FDA-Public Use
  Company Number: PHHY2012GB029689

PATIENT
  Age: 74 Year
  Sex: Male

DRUGS (5)
  1. DOMPERIDONE [Suspect]
     Dosage: 20 MG / 3 DAYS
     Route: 048
     Dates: start: 20120212, end: 20120219
  2. APO-GO [Concomitant]
     Indication: PARKINSON'S DISEASE
     Route: 058
     Dates: start: 20120215, end: 20120219
  3. REQUIP [Suspect]
     Dosage: 20 MG, QD
     Route: 048
  4. STALEVO 100 [Suspect]
     Indication: PARKINSON'S DISEASE
     Dosage: 200 MG, 6QD
     Route: 048
  5. MADOPAR [Suspect]
     Indication: PARKINSON'S DISEASE
     Dosage: 125 MG, QD
     Route: 048

REACTIONS (3)
  - PNEUMONIA [None]
  - ATRIAL FIBRILLATION [None]
  - MYOCARDIAL INFARCTION [None]
